FAERS Safety Report 6672482-6 (Version None)
Quarter: 2010Q2

REPORT INFORMATION
  Report Type: 
  Country: None (occurrence: None)
  Receive Date: 20100408
  Receipt Date: 20100331
  Transmission Date: 20101027
  Serious: Yes (Other)
  Sender: FDA-Public Use
  Company Number: US-MYLANLABS-2009S1021104

PATIENT
  Age: 27 Year
  Sex: Female

DRUGS (2)
  1. AMNESTEEM [Suspect]
     Route: 048
     Dates: start: 20090819, end: 20091203
  2. CLARAVIS [Suspect]
     Route: 048
     Dates: start: 20080819

REACTIONS (2)
  - ABORTION SPONTANEOUS [None]
  - DRUG EXPOSURE DURING PREGNANCY [None]
